FAERS Safety Report 4815521-7 (Version None)
Quarter: 2005Q4

REPORT INFORMATION
  Report Type: 
  Country: None (occurrence: None)
  Receive Date: 20051028
  Receipt Date: 20051028
  Transmission Date: 20060501
  Serious: Yes (Other)
  Sender: FDA-Public Use
  Company Number: None

PATIENT
  Age: 32 Year
  Sex: Female

DRUGS (5)
  1. DULOXETINE-ELI LILLY [Suspect]
     Indication: MAJOR DEPRESSION
     Dosage: 60 MG DAILY PO
     Route: 048
     Dates: start: 20050601
  2. DULOXETINE-ELI LILLY [Suspect]
     Indication: MAJOR DEPRESSION
     Dosage: 60 MG DAILY PO
     Route: 048
     Dates: start: 20050913
  3. QUETIAPINE FUMARATE [Concomitant]
  4. ALPRAZOLAM [Concomitant]
  5. TEMAZEPAM [Concomitant]

REACTIONS (1)
  - ALOPECIA [None]
